FAERS Safety Report 19472502 (Version 1)
Quarter: 2021Q2

REPORT INFORMATION
  Report Type: Report from Study
  Country: ES (occurrence: ES)
  Receive Date: 20210629
  Receipt Date: 20210629
  Transmission Date: 20210717
  Serious: Yes (Other)
  Sender: FDA-Public Use
  Company Number: ES-PFIZER INC-2021725268

PATIENT
  Age: 44 Year
  Sex: Female

DRUGS (8)
  1. MEROPENEM. [Concomitant]
     Active Substance: MEROPENEM
     Indication: FOREIGN BODY REACTION
     Dosage: 1 G, 3X/DAY [1 G/8 H]
  2. FLUCONAZOL [Concomitant]
     Active Substance: FLUCONAZOLE
     Indication: FOREIGN BODY REACTION
     Dosage: 400 MG, 2X/DAY [400 MG/12 H]
  3. DEXAMETHASONE. [Concomitant]
     Active Substance: DEXAMETHASONE
     Indication: FOREIGN BODY REACTION
     Dosage: 4 MG, 2X/DAY (4 MG/ 12 H)
     Route: 042
  4. VORICONAZOLE. [Suspect]
     Active Substance: VORICONAZOLE
     Indication: FOREIGN BODY REACTION
     Dosage: 200 MG, 2X/DAY [200 MG/12 H]
  5. PREDNISONE. [Concomitant]
     Active Substance: PREDNISONE
     Indication: FOREIGN BODY REACTION
     Dosage: 30 MG, 1X/DAY (30 MG/24 H)
  6. LINEZOLID. [Concomitant]
     Active Substance: LINEZOLID
     Indication: FOREIGN BODY REACTION
     Dosage: 600 MG, 2X/DAY [600 MG/12 H]
  7. AMPHOTERICIN?B [Concomitant]
     Active Substance: AMPHOTERICIN B
     Indication: FOREIGN BODY REACTION
     Dosage: 5 MG/KG, 1X/DAY [5 MG/KG/24 H]
  8. LACOSAMIDE. [Concomitant]
     Active Substance: LACOSAMIDE
     Indication: FOREIGN BODY REACTION
     Dosage: 150 MG, 2X/DAY [150 MG/12H]

REACTIONS (1)
  - Cutaneous vasculitis [Unknown]
